FAERS Safety Report 12358975 (Version 1)
Quarter: 2016Q2

REPORT INFORMATION
  Report Type: Spontaneous
  Country: US (occurrence: None)
  Receive Date: 20160511
  Receipt Date: 20160511
  Transmission Date: 20160815
  Serious: Yes (Hospitalization, Other)
  Sender: FDA-Public Use
  Company Number: None

PATIENT
  Age: 57 Year
  Sex: Female
  Weight: 74.39 kg

DRUGS (1)
  1. OTEZLA [Suspect]
     Active Substance: APREMILAST
     Indication: PSORIATIC ARTHROPATHY
     Route: 048
     Dates: start: 20160211, end: 20160509

REACTIONS (7)
  - Palpitations [None]
  - Atrial tachycardia [None]
  - Chest pain [None]
  - Supraventricular extrasystoles [None]
  - Ventricular extrasystoles [None]
  - Dyspnoea [None]
  - Supraventricular tachycardia [None]

NARRATIVE: CASE EVENT DATE: 20160307
